FAERS Safety Report 15226733 (Version 4)
Quarter: 2018Q4

REPORT INFORMATION
  Report Type: Spontaneous
  Country: US (occurrence: US)
  Receive Date: 20180801
  Receipt Date: 20181126
  Transmission Date: 20190204
  Serious: Yes (Death, Hospitalization, Other)
  Sender: FDA-Public Use
  Company Number: US-SA-2018SA207323

PATIENT
  Age: 62 Year
  Sex: Male

DRUGS (1)
  1. LEMTRADA [Suspect]
     Active Substance: ALEMTUZUMAB
     Dosage: UNK
     Route: 041

REACTIONS (4)
  - Immune thrombocytopenic purpura [Unknown]
  - Platelet count decreased [Recovering/Resolving]
  - Oedema [Unknown]
  - Death [Fatal]
